FAERS Safety Report 24817286 (Version 2)
Quarter: 2025Q1

REPORT INFORMATION
  Report Type: Report from Study
  Country: CO (occurrence: CO)
  Receive Date: 20250108
  Receipt Date: 20250112
  Transmission Date: 20250409
  Serious: Yes (Other)
  Sender: JOHNSON AND JOHNSON
  Company Number: CO-JNJFOC-20241289808

PATIENT
  Age: 47 Year
  Sex: Female
  Weight: 70 kg

DRUGS (3)
  1. SIMPONI [Suspect]
     Active Substance: GOLIMUMAB
     Indication: Plasma cell myeloma
     Dosage: LAST TREATMENT ADMINISTRATION DATE: 27-AUG-2024
     Route: 058
     Dates: start: 2020
  2. SIMPONI [Suspect]
     Active Substance: GOLIMUMAB
     Indication: Ankylosing spondylitis
     Route: 058
     Dates: start: 2023
  3. KETOPROFEN [KETOPROFEN LYSINE] [Concomitant]

REACTIONS (5)
  - Breast cancer [Not Recovered/Not Resolved]
  - Breast cancer [Not Recovered/Not Resolved]
  - Ankylosing spondylitis [Not Recovered/Not Resolved]
  - Insomnia [Unknown]
  - Off label use [Unknown]

NARRATIVE: CASE EVENT DATE: 20220101
